FAERS Safety Report 5285701-8 (Version None)
Quarter: 2007Q1

REPORT INFORMATION
  Report Type: 
  Country: None (occurrence: None)
  Receive Date: 20070126
  Receipt Date: 20051007
  Transmission Date: 20070707
  Serious: Yes (Hospitalization)
  Sender: FDA-Public Use
  Company Number: 2006CT001175

PATIENT
  Age: 52 Year
  Sex: Female
  Weight: 41 kg

DRUGS (7)
  1. VENTAVIS [Suspect]
     Indication: PULMONARY HYPERTENSION
     Dosage: SEE IMAGE
     Route: 055
     Dates: start: 20050927, end: 20051004
  2. VENTAVIS [Suspect]
     Indication: PULMONARY HYPERTENSION
     Dosage: SEE IMAGE
     Route: 055
     Dates: start: 20051005, end: 20051007
  3. ESTRADIOL [Concomitant]
  4. TRACLEER [Concomitant]
  5. SINGULAIR [Concomitant]
  6. TYLENOL [Concomitant]
  7. PERSANTINE [Concomitant]

REACTIONS (1)
  - CHEST PAIN [None]
